FAERS Safety Report 7431767-6 (Version None)
Quarter: 2011Q1

REPORT INFORMATION
  Report Type: 
  Country: None (occurrence: None)
  Receive Date: 20110302
  Receipt Date: 20101026
  Transmission Date: 20110831
  Serious: No
  Sender: FDA-Public Use
  Company Number: 021189

PATIENT
  Sex: Female
  Weight: 79.4 kg

DRUGS (4)
  1. VITAMIN D [Concomitant]
  2. PENTASA [Concomitant]
  3. CIMZIA [Suspect]
     Indication: CROHN'S DISEASE
     Dosage: 200 MG 1X/28 DAYS SUBCUTANEOUS
     Route: 058
     Dates: start: 20091009
  4. LISINOPRIL [Concomitant]

REACTIONS (2)
  - FATIGUE [None]
  - PAIN IN EXTREMITY [None]
